FAERS Safety Report 6746912-5 (Version None)
Quarter: 2010Q2

REPORT INFORMATION
  Report Type: 
  Country: None (occurrence: None)
  Receive Date: 20100528
  Receipt Date: 20091105
  Transmission Date: 20101027
  Serious: No
  Sender: FDA-Public Use
  Company Number: US-ASTRAZENECA-2009SE31563

PATIENT

DRUGS (1)
  1. PRILOSEC OTC [Suspect]
     Indication: HYPERCHLORHYDRIA
     Dosage: 1 TABLET, 1 /DAY
     Route: 048
     Dates: start: 20091001

REACTIONS (2)
  - COUGH [None]
  - INCREASED UPPER AIRWAY SECRETION [None]
